FAERS Safety Report 5779676-2 (Version None)
Quarter: 2008Q2

REPORT INFORMATION
  Report Type: 
  Country: None (occurrence: None)
  Receive Date: 20080617
  Receipt Date: 20080605
  Transmission Date: 20081010
  Serious: Yes (Hospitalization)
  Sender: FDA-Public Use
  Company Number: 026#1#2008-00011

PATIENT
  Sex: Female

DRUGS (1)
  1. NEUPRO [Suspect]
     Dosage: TRANSDERMAL
     Route: 062
     Dates: start: 20080401

REACTIONS (2)
  - BLOOD URINE PRESENT [None]
  - URINARY RETENTION [None]
